FAERS Safety Report 21308285 (Version 2)
Quarter: 2022Q4

REPORT INFORMATION
  Report Type: Spontaneous
  Country: CA (occurrence: CA)
  Receive Date: 20220908
  Receipt Date: 20221003
  Transmission Date: 20230113
  Serious: Yes (Hospitalization)
  Sender: FDA-Public Use
  Company Number: CA-BIOGEN-2021BI01080231

PATIENT
  Age: 35 Year
  Sex: Male

DRUGS (3)
  1. TYSABRI [Suspect]
     Active Substance: NATALIZUMAB
     Indication: Multiple sclerosis
     Dosage: TOTAL OF 53 INFUSIONS
     Route: 050
     Dates: start: 20161222, end: 20210507
  2. OCREVUS [Suspect]
     Active Substance: OCRELIZUMAB
     Indication: Multiple sclerosis
     Route: 050
     Dates: start: 20210618, end: 20210702
  3. OCREVUS [Suspect]
     Active Substance: OCRELIZUMAB
     Route: 050
     Dates: start: 202107

REACTIONS (1)
  - Multiple sclerosis relapse [Unknown]

NARRATIVE: CASE EVENT DATE: 20211211
